FAERS Safety Report 5636660-7 (Version None)
Quarter: 2008Q1

REPORT INFORMATION
  Report Type: 
  Country: None (occurrence: None)
  Receive Date: 20080220
  Receipt Date: 20080213
  Transmission Date: 20080703
  Serious: Yes (Hospitalization)
  Sender: FDA-Public Use
  Company Number: E2090-00372-SPO-JP

PATIENT
  Age: 60 Year
  Sex: Male

DRUGS (7)
  1. ZONISAMIDE [Suspect]
     Indication: EPILEPSY
     Dosage: 200 MG, 1 IN 1 D, ORAL
     Route: 048
     Dates: start: 20071129, end: 20071228
  2. SPIRIVA (TIOTROPIUM BROMIDE HYDRATE) [Concomitant]
  3. FLUTIDE DISKUS (FLUTICASONE PROPIONATE) [Concomitant]
  4. VERAPAMIL HYDROCHLORIDE [Concomitant]
  5. DIGOXIN [Concomitant]
  6. ASPIRIN [Concomitant]
  7. FAMOTIDINE [Concomitant]

REACTIONS (5)
  - BLISTER [None]
  - CONJUNCTIVITIS [None]
  - DRUG RASH WITH EOSINOPHILIA AND SYSTEMIC SYMPTOMS [None]
  - HEPATIC FUNCTION ABNORMAL [None]
  - PYREXIA [None]
